FAERS Safety Report 6834694-8 (Version None)
Quarter: 2010Q3

REPORT INFORMATION
  Report Type: 
  Country: None (occurrence: None)
  Receive Date: 20100712
  Receipt Date: 20070424
  Transmission Date: 20110219
  Serious: No
  Sender: FDA-Public Use
  Company Number: US-PFIZER INC-2007034295

PATIENT
  Sex: Female
  Weight: 68.2 kg

DRUGS (7)
  1. CHANTIX [Suspect]
     Indication: SMOKING CESSATION THERAPY
     Dates: start: 20070401
  2. NEURONTIN [Concomitant]
  3. CLOZARIL [Concomitant]
  4. DETROL [Concomitant]
  5. ZETIA [Concomitant]
  6. ACETYLSALICYLIC ACID [Concomitant]
  7. DRUG, UNSPECIFIED [Concomitant]
     Indication: MENTAL DISORDER

REACTIONS (4)
  - FATIGUE [None]
  - NAUSEA [None]
  - SLEEP APNOEA SYNDROME [None]
  - SOMNOLENCE [None]
